FAERS Safety Report 5381264-7 (Version None)
Quarter: 2007Q3

REPORT INFORMATION
  Report Type: 
  Country: None (occurrence: None)
  Receive Date: 20070702
  Receipt Date: 20070418
  Transmission Date: 20080115
  Serious: Yes (Other)
  Sender: FDA-Public Use
  Company Number: 07-000878

PATIENT
  Age: 44 Year
  Sex: Female
  Weight: 70.3 kg

DRUGS (4)
  1. LOESTRIN(ETHINYL ESTRADIOL, NORETHINDRONE ACETATE) TABLET, 1MG/20MCG [Suspect]
     Indication: CONTRACEPTION
     Dosage: 20/1000 UG, QD, ORAL
     Route: 048
     Dates: start: 19900101, end: 20050701
  2. ATIVAN [Concomitant]
  3. AMBIEN [Concomitant]
  4. NORVASC [Concomitant]

REACTIONS (2)
  - BREAST CANCER [None]
  - PRECANCEROUS CELLS PRESENT [None]
